FAERS Safety Report 25891364 (Version 1)
Quarter: 2025Q4

REPORT INFORMATION
  Report Type: Spontaneous
  Country: EU (occurrence: EU)
  Receive Date: 20251007
  Receipt Date: 20251007
  Transmission Date: 20260118
  Serious: Yes (Life-Threatening)
  Sender: FRESENIUS KABI
  Company Number: None

PATIENT
  Age: 51 Year
  Sex: Female

DRUGS (1)
  1. PACLITAXEL [Suspect]
     Active Substance: PACLITAXEL
     Indication: Product used for unknown indication
     Dosage: FOA: SOLUTION FOR INJECTION
     Route: 042
     Dates: start: 20250912, end: 20250912

REACTIONS (5)
  - Back pain [Unknown]
  - Oxygen saturation decreased [Unknown]
  - Hypotension [Unknown]
  - Syncope [Unknown]
  - Erythema [Unknown]

NARRATIVE: CASE EVENT DATE: 20250912
